FAERS Safety Report 24058884 (Version 3)
Quarter: 2024Q3

REPORT INFORMATION
  Report Type: Spontaneous
  Country: ES (occurrence: ES)
  Receive Date: 20240708
  Receipt Date: 20240722
  Transmission Date: 20241016
  Serious: Yes (Hospitalization, Other)
  Sender: EXELIXIS
  Company Number: ES-IPSEN Group, Research and Development-2024-13021

PATIENT
  Age: 58 Year
  Sex: Male
  Weight: 88 kg

DRUGS (1)
  1. CABOMETYX [Suspect]
     Active Substance: CABOZANTINIB S-MALATE
     Indication: Renal cancer
     Route: 048
     Dates: start: 20230622

REACTIONS (4)
  - Peritoneal abscess [Unknown]
  - Anal abscess [Recovering/Resolving]
  - Anal fistula [Recovering/Resolving]
  - Fistula [Recovered/Resolved]

NARRATIVE: CASE EVENT DATE: 20240624
